FAERS Safety Report 24045374 (Version 2)
Quarter: 2024Q4

REPORT INFORMATION
  Report Type: Spontaneous
  Country: US (occurrence: US)
  Receive Date: 20240703
  Receipt Date: 20241104
  Transmission Date: 20250115
  Serious: Yes (Other)
  Sender: BRISTOL-MYERS SQUIBB COMPANY
  Company Number: US-BRISTOL-MYERS SQUIBB COMPANY-2024-105846

PATIENT
  Age: 71 Year
  Sex: Male
  Weight: 103.87 kg

DRUGS (2)
  1. POMALYST [Suspect]
     Active Substance: POMALIDOMIDE
     Indication: Plasma cell myeloma
     Dosage: 3WKSON/1WKOFF
     Route: 048
  2. POMALYST [Suspect]
     Active Substance: POMALIDOMIDE
     Dosage: 3WKSON/1WKOFF
     Route: 048

REACTIONS (3)
  - Neuropathy peripheral [Unknown]
  - Oedema peripheral [Unknown]
  - Rash [Unknown]
